FAERS Safety Report 7333142-1 (Version None)
Quarter: 2011Q1

REPORT INFORMATION
  Report Type: 
  Country: None (occurrence: None)
  Receive Date: 20110304
  Receipt Date: 20091214
  Transmission Date: 20110831
  Serious: No
  Sender: FDA-Public Use
  Company Number: US-PFIZER INC-2009275608

PATIENT
  Sex: Female
  Weight: 90.718 kg

DRUGS (3)
  1. DILANTIN [Suspect]
     Indication: EPILEPSY
     Dosage: 300 MG, 1X/DAY AT NIGHT
     Route: 048
  2. LYRICA [Suspect]
     Indication: PROPHYLAXIS
     Dosage: 50 MG, 1X/DAY
     Dates: start: 20091020
  3. SYNTHROID [Concomitant]
     Indication: HYPERTHYROIDISM
     Dosage: 0.5 UG, UNK

REACTIONS (6)
  - HYPERTENSION [None]
  - ANXIETY [None]
  - BURNING SENSATION [None]
  - EUPHORIC MOOD [None]
  - PRURITUS [None]
  - TELANGIECTASIA [None]
